FAERS Safety Report 17145365 (Version 1)
Quarter: 2019Q4

REPORT INFORMATION
  Report Type: Spontaneous
  Country: CN (occurrence: CN)
  Receive Date: 20191212
  Receipt Date: 20191212
  Transmission Date: 20200122
  Serious: Yes (Hospitalization)
  Sender: FDA-Public Use
  Company Number: CN-BAXTER-2019BAX025036

PATIENT
  Age: 50 Year
  Sex: Female
  Weight: 58 kg

DRUGS (4)
  1. ENDOXAN [Suspect]
     Active Substance: CYCLOPHOSPHAMIDE
     Indication: NEPHROTIC SYNDROME
     Dosage: ENDOXAN 400 MG + 0.9% NS 250ML
     Route: 041
     Dates: start: 20191106, end: 20191106
  2. 0.9% SODIUM CHLORIDE INJECTION [Suspect]
     Active Substance: SODIUM CHLORIDE
     Dosage: DOSE RE-INTRODUCED (ENDOXAN + 0.9% NS)
     Route: 041
  3. ENDOXAN [Suspect]
     Active Substance: CYCLOPHOSPHAMIDE
     Dosage: DOSE RE-INTRODUCED (ENDOXAN + 0.9% NS)
     Route: 041
  4. 0.9% SODIUM CHLORIDE INJECTION [Suspect]
     Active Substance: SODIUM CHLORIDE
     Indication: MEDICATION DILUTION
     Dosage: ENDOXAN 400 MG + 0.9% NS 250ML
     Route: 041
     Dates: start: 20191106, end: 20191106

REACTIONS (2)
  - Seizure [Recovered/Resolved]
  - Chest discomfort [Recovering/Resolving]

NARRATIVE: CASE EVENT DATE: 20191107
